FAERS Safety Report 5621945-0 (Version None)
Quarter: 2008Q1

REPORT INFORMATION
  Report Type: 
  Country: None (occurrence: None)
  Receive Date: 20080211
  Receipt Date: 20080207
  Transmission Date: 20080703
  Serious: Yes (Death)
  Sender: FDA-Public Use
  Company Number: A0697802A

PATIENT
  Age: 87 Year
  Sex: Female
  Weight: 69 kg

DRUGS (3)
  1. ROSIGLITAZONE [Suspect]
     Dosage: 8MG PER DAY
     Route: 048
     Dates: start: 20070720
  2. REMINYL [Concomitant]
     Route: 048
     Dates: start: 20041227
  3. AMIODARONE HCL [Concomitant]
     Indication: HYPERTENSION
     Dosage: 1TAB PER DAY
     Route: 048
     Dates: start: 19891218

REACTIONS (1)
  - ACUTE PULMONARY OEDEMA [None]
